FAERS Safety Report 5442001-0 (Version None)
Quarter: 2007Q3

REPORT INFORMATION
  Report Type: 
  Country: None (occurrence: None)
  Receive Date: 20070904
  Receipt Date: 20070827
  Transmission Date: 20080115
  Serious: Yes (Death)
  Sender: FDA-Public Use
  Company Number: B0485706A

PATIENT
  Age: 72 Year
  Sex: Female

DRUGS (18)
  1. ARIXTRA [Suspect]
     Indication: PULMONARY EMBOLISM
     Dosage: 7.5MG PER DAY
     Route: 065
     Dates: start: 20070601, end: 20070611
  2. BRICANYL [Concomitant]
  3. SERETIDE DISKUS [Concomitant]
  4. CORDARONE [Concomitant]
  5. ARGATROBAN [Concomitant]
     Dates: start: 20070101
  6. LEVOTHYROXINE SODIUM [Concomitant]
  7. ALVEDON [Concomitant]
  8. FLORINEF [Concomitant]
  9. CLOXACILLIN SODIUM [Concomitant]
  10. BETAPRED [Concomitant]
  11. CATAPRESAN [Concomitant]
     Dates: start: 20070101
  12. TRANDATE [Concomitant]
     Dates: start: 20070101
  13. MORFIN [Concomitant]
  14. NIMOTOP [Concomitant]
  15. ANDAPSIN [Concomitant]
  16. PLENDIL [Concomitant]
  17. MIDAZOLAM HCL [Concomitant]
  18. HEPARIN [Concomitant]
     Dates: end: 20070101

REACTIONS (10)
  - BLOOD PRESSURE SYSTOLIC INCREASED [None]
  - CEREBRAL HAEMORRHAGE [None]
  - HEPARIN-INDUCED THROMBOCYTOPENIA [None]
  - INTRACRANIAL VENOUS SINUS THROMBOSIS [None]
  - MECHANICAL VENTILATION [None]
  - PLATELET COUNT DECREASED [None]
  - PLATELET COUNT INCREASED [None]
  - PNEUMONIA [None]
  - SWELLING [None]
  - VENTRICULAR DRAINAGE [None]
